FAERS Safety Report 5851749-5 (Version None)
Quarter: 2008Q3

REPORT INFORMATION
  Report Type: 
  Country: None (occurrence: None)
  Receive Date: 20080820
  Receipt Date: 20080820
  Transmission Date: 20090109
  Serious: Yes (Death, Hospitalization, Other)
  Sender: FDA-Public Use
  Company Number: PHEH2000US09435

PATIENT
  Sex: Female
  Weight: 91 kg

DRUGS (3)
  1. MYCOPHENOLIC ACID [Suspect]
     Indication: RENAL TRANSPLANT
     Dosage: 1 G, BID
     Route: 048
     Dates: start: 20000905, end: 20001121
  2. NEORAL [Suspect]
     Indication: RENAL TRANSPLANT
     Dosage: 175 MG, BID
     Route: 048
     Dates: start: 19991123
  3. PREDNISONE TAB [Suspect]
     Indication: RENAL TRANSPLANT
     Dosage: 10 MG, BID
     Route: 048
     Dates: start: 19991125

REACTIONS (5)
  - ABDOMINAL PAIN LOWER [None]
  - BLADDER TRANSITIONAL CELL CARCINOMA [None]
  - CHROMATURIA [None]
  - METASTATIC NEOPLASM [None]
  - RED BLOOD CELLS URINE [None]
